FAERS Safety Report 13485193 (Version 1)
Quarter: 2017Q2

REPORT INFORMATION
  Report Type: Spontaneous
  Country: FR (occurrence: FR)
  Receive Date: 20170425
  Receipt Date: 20170425
  Transmission Date: 20170830
  Serious: Yes (Other)
  Sender: FDA-Public Use
  Company Number: FR-ACCORD-050483

PATIENT
  Age: 34 Year
  Sex: Female

DRUGS (16)
  1. RANITIDINE. [Concomitant]
     Active Substance: RANITIDINE
  2. DEXAMETHASONE MYLAN [Concomitant]
     Active Substance: DEXAMETHASONE
  3. ONDANSETRON ACCORD [Suspect]
     Active Substance: ONDANSETRON
     Indication: PRODUCT USED FOR UNKNOWN INDICATION
     Dosage: ONE SINGLE INTAKE
     Route: 042
     Dates: start: 20170325
  4. ALGINIC ACID/MAGNESIUM ALGINATE [Concomitant]
  5. SUFENTANIL [Concomitant]
     Active Substance: SUFENTANIL
  6. ALGINIC ACID/ALUMINIUM HYDROXIDE [Concomitant]
  7. PHLOROGLUCINOL [Concomitant]
     Active Substance: PHLOROGLUCINOL
  8. SODIUM BICARBONATE. [Concomitant]
     Active Substance: SODIUM BICARBONATE
  9. BUPIVACAINE MYLAN [Suspect]
     Active Substance: BUPIVACAINE
     Indication: SPINAL ANAESTHESIA
     Dosage: LAST ADMINSTRATION : 25-MAR-2017, ONE SINGLE INTAKE
     Route: 008
     Dates: start: 20170325
  10. DOLIPRANE [Concomitant]
     Active Substance: ACETAMINOPHEN
  11. MORPHINE [Concomitant]
     Active Substance: MORPHINE
     Dosage: 100 UG
  12. IRON [Concomitant]
     Active Substance: IRON
  13. SODIUM ALGINATE [Concomitant]
     Active Substance: SODIUM ALGINATE
  14. PHLOROGLUCINOL [Concomitant]
     Active Substance: PHLOROGLUCINOL
  15. OXYTOCIN. [Suspect]
     Active Substance: OXYTOCIN
     Indication: UTERINE DISORDER
     Dosage: LAST ADMINISTRATION : 25-MAR-2017
     Route: 042
     Dates: start: 20170325
  16. CEFAZOLINE MYLAN [Suspect]
     Active Substance: CEFAZOLIN SODIUM
     Indication: ANTIBIOTIC PROPHYLAXIS
     Dosage: LAST ADMINISTRATION DATE:25-MAR-2017
     Dates: start: 20170325

REACTIONS (4)
  - Hypotension [Recovered/Resolved]
  - Malaise [Recovered/Resolved]
  - Erythema [Recovered/Resolved]
  - Dyspnoea [Recovered/Resolved]

NARRATIVE: CASE EVENT DATE: 20170325
